FAERS Safety Report 7382370-8 (Version None)
Quarter: 2011Q1

REPORT INFORMATION
  Report Type: 
  Country: None (occurrence: None)
  Receive Date: 20110329
  Receipt Date: 20110302
  Transmission Date: 20110831
  Serious: Yes (Other)
  Sender: FDA-Public Use
  Company Number: US-BAYER-201022292NA

PATIENT
  Sex: Female
  Weight: 52 kg

DRUGS (7)
  1. NEXIUM [Concomitant]
     Indication: GASTROOESOPHAGEAL REFLUX DISEASE
     Dosage: UNK
     Dates: start: 20070101
  2. LYRICA [Concomitant]
     Indication: PAIN
  3. EFFEXOR [Concomitant]
     Dosage: 150 MG, UNK
     Route: 048
  4. YAZ [Suspect]
     Indication: PRODUCT USED FOR UNKNOWN INDICATION
     Route: 048
     Dates: start: 20040101, end: 20080101
  5. LYRICA [Concomitant]
     Indication: COMPLEX REGIONAL PAIN SYNDROME
     Dosage: 75 MG, UNK
     Route: 048
     Dates: start: 20020101
  6. IBUPROFEN [Concomitant]
  7. YASMIN [Suspect]
     Indication: ORAL CONTRACEPTION
     Dosage: UNK UNK, QD
     Route: 048
     Dates: start: 20040101, end: 20070401

REACTIONS (5)
  - CHOLELITHIASIS [None]
  - GALLBLADDER DISORDER [None]
  - ABDOMINAL PAIN UPPER [None]
  - PANCREATITIS [None]
  - CHOLECYSTITIS [None]
